FAERS Safety Report 10010170 (Version 2)
Quarter: 2015Q1

REPORT INFORMATION
  Report Type: Spontaneous
  Country: US (occurrence: US)
  Receive Date: 20140312
  Receipt Date: 20150312
  Transmission Date: 20150720
  Serious: No
  Sender: FDA-Public Use
  Company Number: US-INCYTE CORPORATION-2013IN001696

PATIENT
  Age: 93 Year
  Sex: Female

DRUGS (22)
  1. FAMOTIDINE. [Concomitant]
     Active Substance: FAMOTIDINE
  2. LEVOTHYROXINE [Concomitant]
     Active Substance: LEVOTHYROXINE
  3. COLACE [Concomitant]
     Active Substance: DOCUSATE SODIUM
  4. ANAGRELIDE [Concomitant]
     Active Substance: ANAGRELIDE
  5. LIPITOR [Concomitant]
     Active Substance: ATORVASTATIN CALCIUM
  6. METOPROLOL                         /00376902/ [Concomitant]
     Active Substance: METOPROLOL
  7. SPIRONOLACTONE. [Concomitant]
     Active Substance: SPIRONOLACTONE
  8. TRAZODONE [Concomitant]
     Active Substance: TRAZODONE HYDROCHLORIDE
  9. CRANBERRY                          /01512301/ [Concomitant]
  10. JAKAFI [Suspect]
     Active Substance: RUXOLITINIB
     Indication: MYELOFIBROSIS
     Dosage: 20 MG, AM AND 10 MG, PM
     Route: 048
     Dates: start: 20130628
  11. JAKAFI [Suspect]
     Active Substance: RUXOLITINIB
     Dosage: 10 MG, BID
     Route: 048
  12. HYDROCODONE COMPOUND               /01224801/ [Concomitant]
  13. MIRABEGRON [Concomitant]
     Active Substance: MIRABEGRON
  14. TYLENOL [Concomitant]
     Active Substance: ACETAMINOPHEN
  15. AMIODARONE                         /00133102/ [Concomitant]
     Active Substance: AMIODARONE
  16. ISOSORBIDE [Concomitant]
     Active Substance: ISOSORBIDE
  17. LASIX [Concomitant]
     Active Substance: FUROSEMIDE
  18. PLAVIX [Concomitant]
     Active Substance: CLOPIDOGREL BISULFATE
  19. VESICARE [Concomitant]
     Active Substance: SOLIFENACIN SUCCINATE
  20. COQ10                              /00517201/ [Concomitant]
  21. CITALOPRAM [Concomitant]
     Active Substance: CITALOPRAM HYDROBROMIDE
  22. POTASSIUM                          /00209301/ [Concomitant]
     Active Substance: POTASSIUM BICARBONATE\POTASSIUM CHLORIDE

REACTIONS (1)
  - Tooth infection [Unknown]

NARRATIVE: CASE EVENT DATE: 20130725
